FAERS Safety Report 10413201 (Version 1)
Quarter: 2014Q3

REPORT INFORMATION
  Report Type: Spontaneous
  Country: IT (occurrence: IT)
  Receive Date: 20140827
  Receipt Date: 20140827
  Transmission Date: 20150326
  Serious: Yes (Other)
  Sender: FDA-Public Use
  Company Number: IT-DSJP-DSE-2014-119636

PATIENT

DRUGS (1)
  1. PLAUNAC 20 MG [Suspect]
     Active Substance: OLMESARTAN MEDOXOMIL
     Indication: HYPERTENSION
     Dosage: 5 MG, QD
     Route: 048
     Dates: start: 20130901, end: 20140727

REACTIONS (2)
  - Drug administration error [Recovered/Resolved]
  - Angioedema [Recovering/Resolving]

NARRATIVE: CASE EVENT DATE: 20130901
